FAERS Safety Report 9559502 (Version 1)
Quarter: 2013Q3

REPORT INFORMATION
  Report Type: Spontaneous
  Country: FR (occurrence: FR)
  Receive Date: 20130927
  Receipt Date: 20130927
  Transmission Date: 20140515
  Serious: Yes (Hospitalization)
  Sender: FDA-Public Use
  Company Number: FR-JNJFOC-20130912963

PATIENT
  Age: 44 Year
  Sex: Female

DRUGS (3)
  1. REMICADE [Suspect]
     Indication: PRODUCT USED FOR UNKNOWN INDICATION
     Route: 042
  2. REMICADE [Suspect]
     Indication: PRODUCT USED FOR UNKNOWN INDICATION
     Dosage: 13 TH INFLIXIMAB INFUSION
     Route: 042
     Dates: start: 20130819
  3. METHOTREXATE [Concomitant]
     Route: 048

REACTIONS (3)
  - Infusion site oedema [Recovering/Resolving]
  - Paraesthesia [Recovering/Resolving]
  - Infusion site pain [Recovering/Resolving]
